FAERS Safety Report 16994392 (Version 2)
Quarter: 2019Q4

REPORT INFORMATION
  Report Type: Spontaneous
  Country: US (occurrence: US)
  Receive Date: 20191105
  Receipt Date: 20191129
  Transmission Date: 20200122
  Serious: No
  Sender: FDA-Public Use
  Company Number: US-ASTRAZENECA-2019SF52511

PATIENT
  Age: 25641 Day
  Sex: Female
  Weight: 97.1 kg

DRUGS (18)
  1. BYDUREON BCISE [Suspect]
     Active Substance: EXENATIDE
     Indication: TYPE 2 DIABETES MELLITUS
     Route: 058
     Dates: start: 20191008
  2. OZEMPIC [Concomitant]
     Active Substance: SEMAGLUTIDE
  3. METFORMIN [Concomitant]
     Active Substance: METFORMIN HYDROCHLORIDE
     Route: 048
  4. HCTZ [Concomitant]
     Active Substance: HYDROCHLOROTHIAZIDE
     Indication: BLOOD PRESSURE MEASUREMENT
  5. FISH OIL SUPPLEMT OTX [Concomitant]
  6. PROLIA [Concomitant]
     Active Substance: DENOSUMAB
     Indication: BONE DISORDER
     Dosage: UNKNOWN DOSE, MONTHLY
  7. BYDUREON BCISE [Suspect]
     Active Substance: EXENATIDE
     Indication: BLOOD GLUCOSE INCREASED
     Route: 058
     Dates: start: 20191008
  8. TRULICITY [Concomitant]
     Active Substance: DULAGLUTIDE
  9. ATORVASTATIN [Concomitant]
     Active Substance: ATORVASTATIN
     Indication: BLOOD PRESSURE MEASUREMENT
  10. MAG OX SUPPLEMENT OTC [Concomitant]
  11. OXYGEN. [Concomitant]
     Active Substance: OXYGEN
     Dosage: UNKNOWN DOSE, AS NEEDED
  12. VICTOZA [Concomitant]
     Active Substance: LIRAGLUTIDE
  13. WELCHOL [Concomitant]
     Active Substance: COLESEVELAM HYDROCHLORIDE
     Indication: GALLBLADDER DISORDER
  14. MONTELUKAST [Concomitant]
     Active Substance: MONTELUKAST SODIUM
     Dosage: UNKNOWN DOSE, AT NIGHT
  15. LEVOTHYROXINE. [Concomitant]
     Active Substance: LEVOTHYROXINE
     Indication: THYROID DISORDER
     Dosage: UNKNOWN DOSE, DAILY
  16. LOSARTAN. [Concomitant]
     Active Substance: LOSARTAN
     Indication: BLOOD PRESSURE MEASUREMENT
  17. BABY ASPIRIN [Concomitant]
     Active Substance: ASPIRIN
  18. CELEBREX [Concomitant]
     Active Substance: CELECOXIB
     Indication: ARTHRALGIA

REACTIONS (9)
  - Gait disturbance [Unknown]
  - Diabetes mellitus inadequate control [Unknown]
  - Wrong technique in device usage process [Unknown]
  - Device use error [Unknown]
  - Nasal congestion [Unknown]
  - Injection site bruising [Unknown]
  - Injection site mass [Unknown]
  - Blood glucose fluctuation [Not Recovered/Not Resolved]
  - Device issue [Unknown]

NARRATIVE: CASE EVENT DATE: 20190930
